FAERS Safety Report 17817019 (Version 1)
Quarter: 2020Q2

REPORT INFORMATION
  Report Type: Spontaneous
  Country: US (occurrence: US)
  Receive Date: 20200522
  Receipt Date: 20200522
  Transmission Date: 20200714
  Serious: Yes (Hospitalization)
  Sender: FDA-Public Use
  Company Number: US-JNJFOC-20200513562

PATIENT
  Age: 60 Year
  Sex: Female

DRUGS (1)
  1. INVOKANA [Suspect]
     Active Substance: CANAGLIFLOZIN
     Indication: PRODUCT USED FOR UNKNOWN INDICATION
     Route: 048

REACTIONS (4)
  - Acute kidney injury [Recovering/Resolving]
  - Acute lung injury [Recovering/Resolving]
  - Sepsis [Recovering/Resolving]
  - Fournier^s gangrene [Unknown]

NARRATIVE: CASE EVENT DATE: 20170801
